FAERS Safety Report 10710570 (Version 1)
Quarter: 2015Q1

REPORT INFORMATION
  Report Type: Report from Study
  Country: GR (occurrence: GR)
  Receive Date: 20150114
  Receipt Date: 20150114
  Transmission Date: 20150721
  Serious: Yes (Hospitalization)
  Sender: FDA-Public Use
  Company Number: GR-ROXANE LABORATORIES, INC.-2015-BI-00850GD

PATIENT
  Age: 39 Year
  Sex: Male

DRUGS (4)
  1. BOSENTAN [Suspect]
     Active Substance: BOSENTAN\BOSENTAN MONOHYDRATE
     Indication: SYSTEMIC SCLEROSIS
     Route: 065
  2. PREDNISONE. [Suspect]
     Active Substance: PREDNISONE
     Indication: SYSTEMIC SCLEROSIS
     Dosage: LOW DOSE
     Route: 065
  3. MYCOPHENOLATE MOFETIL. [Suspect]
     Active Substance: MYCOPHENOLATE MOFETIL
     Indication: SYSTEMIC SCLEROSIS
     Route: 065
  4. RITUXIMAB [Suspect]
     Active Substance: RITUXIMAB
     Indication: SYSTEMIC SCLEROSIS
     Dosage: 53.57 MG/ME2
     Route: 065

REACTIONS (3)
  - Leukopenia [Recovered/Resolved]
  - Respiratory tract infection [Recovered/Resolved]
  - H1N1 influenza [Recovered/Resolved]
